FAERS Safety Report 6022165-0 (Version None)
Quarter: 2008Q4

REPORT INFORMATION
  Report Type: 
  Country: None (occurrence: None)
  Receive Date: 20081229
  Receipt Date: 20081226
  Transmission Date: 20090506
  Serious: Yes (Death)
  Sender: FDA-Public Use
  Company Number: JP-B.I. PHARMACEUTICALS,INC./RIDGEFIELD-2008-BP-04868NB

PATIENT
  Sex: Male

DRUGS (4)
  1. MICARDIS [Suspect]
     Indication: HYPERTENSION
     Dosage: 40MG
     Route: 048
     Dates: start: 20070215, end: 20070814
  2. ADALAT [Suspect]
     Indication: HYPERTENSION
     Dosage: 40MG
     Route: 048
     Dates: start: 20031101, end: 20070814
  3. LIVALO [Suspect]
     Dosage: 1MG
     Route: 048
     Dates: start: 20070215, end: 20070814
  4. EPADEL S [Suspect]
     Dosage: 1800MG
     Route: 048
     Dates: start: 20031218, end: 20070814

REACTIONS (1)
  - ROAD TRAFFIC ACCIDENT [None]
